FAERS Safety Report 10787952 (Version 1)
Quarter: 2015Q1

REPORT INFORMATION
  Report Type: Spontaneous
  Country: AU (occurrence: US)
  Receive Date: 20150212
  Receipt Date: 20150212
  Transmission Date: 20150721
  Serious: Yes (Other)
  Sender: FDA-Public Use
  Company Number: US-JNJCP-30000264145

PATIENT
  Sex: Female

DRUGS (1)
  1. NEUTROGENA OIL FREE ACNE WASH [Suspect]
     Active Substance: SALICYLIC ACID
     Indication: ACNE
     Route: 061

REACTIONS (3)
  - Application site erythema [Unknown]
  - Application site vesicles [Unknown]
  - Application site exfoliation [Unknown]

NARRATIVE: CASE EVENT DATE: 201501
